FAERS Safety Report 4276672-1 (Version None)
Quarter: 2004Q1

REPORT INFORMATION
  Report Type: 
  Country: None (occurrence: None)
  Receive Date: 20040120
  Receipt Date: 20031113
  Transmission Date: 20041129
  Serious: Yes (Life-Threatening, Hospitalization, Disabling, Other)
  Sender: FDA-Public Use
  Company Number: 2002067488

PATIENT
  Age: 74 Year
  Sex: Male
  Weight: 79.3795 kg

DRUGS (20)
  1. LOPID [Suspect]
     Indication: HYPERCHOLESTEROLAEMIA
     Dosage: 600 MG (D), ORAL
     Route: 048
     Dates: start: 19980429, end: 20010820
  2. CERIVASTATIN SODIUM (CERIVASTATIN SODIUM) [Suspect]
     Indication: HYPERCHOLESTEROLAEMIA
     Dosage: 0.8 MG, ORAL
     Route: 048
     Dates: start: 20010701, end: 20010820
  3. SIMVASTATIN [Concomitant]
  4. WARFARIN SODIUM [Concomitant]
  5. METOPROLOL SUCCINATE [Concomitant]
  6. HYDROCHLOROTHIAZIDE [Concomitant]
  7. TOCOPHEROL CONCENTRATE CAP [Concomitant]
  8. ASCORBIC ACID [Concomitant]
  9. ABETIL (ASCORBIC ACID, TOCOPHEROL, BETACAROTENE) [Concomitant]
  10. SELENIUM (SELENIUM) [Concomitant]
  11. FOLIC ACID [Concomitant]
  12. POTASSIUM CHLORIDE [Concomitant]
  13. AMLODIPINE BESYLATE [Concomitant]
  14. FENOFIBRATE [Concomitant]
  15. ATORVASTATIN (ATORVASTATIN) [Concomitant]
  16. FELODIPINE [Concomitant]
  17. CHONDROITIN/GLUCOSAMINE (GLUCOSAMINE, CHONDROITIN) [Concomitant]
  18. ACETYLSALICYLIC ACID SRT [Concomitant]
  19. SILDENAFIL CITRATE (SILDENAFIL CITRATE) [Concomitant]
  20. ALL OTHER THERAPEUTIC PRODUCTS [Concomitant]

REACTIONS (30)
  - ANXIETY [None]
  - BALANCE DISORDER [None]
  - BENIGN PROSTATIC HYPERPLASIA [None]
  - BILIARY NEOPLASM [None]
  - BLOOD POTASSIUM DECREASED [None]
  - BLOOD PRESSURE SYSTOLIC INCREASED [None]
  - BLOOD SODIUM DECREASED [None]
  - DIFFICULTY IN WALKING [None]
  - EMOTIONAL DISTRESS [None]
  - FATIGUE [None]
  - FEAR [None]
  - FEELING ABNORMAL [None]
  - GAIT DISTURBANCE [None]
  - HAEMATOCRIT DECREASED [None]
  - HAEMOGLOBIN DECREASED [None]
  - HEADACHE [None]
  - HEPATITIS [None]
  - HYPOTONIA [None]
  - INJECTION SITE BURNING [None]
  - INJURY [None]
  - JOINT STIFFNESS [None]
  - NERVOUSNESS [None]
  - PAIN [None]
  - RENAL FAILURE [None]
  - RHABDOMYOLYSIS [None]
  - SPLENOMEGALY [None]
  - STOOLS WATERY [None]
  - TREMOR [None]
  - URINE ANALYSIS ABNORMAL [None]
  - UROBILIN URINE [None]
